FAERS Safety Report 7790589-7 (Version None)
Quarter: 2011Q3

REPORT INFORMATION
  Report Type: 
  Country: None (occurrence: None)
  Receive Date: 20110930
  Receipt Date: 20110926
  Transmission Date: 20111222
  Serious: Yes (Other)
  Sender: FDA-Public Use
  Company Number: BR-PFIZER INC-2011229712

PATIENT
  Age: 44 Year
  Sex: Female
  Weight: 55 kg

DRUGS (3)
  1. GEODON [Suspect]
     Indication: SCHIZOPHRENIA
     Dosage: 40 MG, UNK
     Route: 048
     Dates: start: 20070101, end: 20100101
  2. CARBAMAZEPINE [Concomitant]
     Indication: AGGRESSION
     Dosage: UNK
  3. GEODON [Suspect]
     Dosage: 80 MG, 2X/DAY
     Route: 048
     Dates: start: 20100101

REACTIONS (6)
  - HEAD DISCOMFORT [None]
  - DRUG LEVEL INCREASED [None]
  - DYSPNOEA [None]
  - RETCHING [None]
  - ABNORMAL BEHAVIOUR [None]
  - HEADACHE [None]
